FAERS Safety Report 22249722 (Version 1)
Quarter: 2023Q2

REPORT INFORMATION
  Report Type: Spontaneous
  Country: CA (occurrence: CA)
  Receive Date: 20230425
  Receipt Date: 20230425
  Transmission Date: 20230721
  Serious: Yes (Other)
  Sender: FDA-Public Use
  Company Number: CA-002147023-NVSC2023CA089865

PATIENT
  Age: 49 Year
  Sex: Male

DRUGS (1)
  1. ADALIMUMAB [Suspect]
     Active Substance: ADALIMUMAB
     Indication: Crohn^s disease
     Dosage: 40 MG
     Route: 058

REACTIONS (7)
  - Faecal calprotectin abnormal [Unknown]
  - Acne [Unknown]
  - Inflammation [Unknown]
  - C-reactive protein increased [Unknown]
  - Abdominal pain [Unknown]
  - Colitis [Unknown]
  - Drug ineffective [Unknown]
